FAERS Safety Report 5914498-0 (Version None)
Quarter: 2008Q4

REPORT INFORMATION
  Report Type: 
  Country: None (occurrence: None)
  Receive Date: 20081008
  Receipt Date: 20081001
  Transmission Date: 20090506
  Serious: Yes (Life-Threatening, Hospitalization, Other)
  Sender: FDA-Public Use
  Company Number: PHHY2008GB23252

PATIENT
  Sex: Female

DRUGS (4)
  1. VOLTAROL (DICLOFENAC POTASSIUM) FILM-COATED TABLET [Suspect]
  2. RAMIPRIL [Suspect]
  3. LEVOTHYROXINE SODIUM [Concomitant]
  4. HRT (NORETHISTERONE , ESTRADIOL VALERATE) UNKNOWN [Concomitant]

REACTIONS (2)
  - HYPERTENSION [None]
  - SHOCK [None]
